FAERS Safety Report 5192152-3 (Version None)
Quarter: 2006Q4

REPORT INFORMATION
  Report Type: 
  Country: None (occurrence: None)
  Receive Date: 20061227
  Receipt Date: 20061115
  Transmission Date: 20070319
  Serious: Yes (Disabling)
  Sender: FDA-Public Use
  Company Number: GB-MERCK-0611GBR00088

PATIENT
  Sex: Male
  Weight: 62 kg

DRUGS (7)
  1. COZAAR [Suspect]
     Indication: DYSPNOEA
     Route: 048
     Dates: start: 20060519, end: 20060809
  2. COZAAR [Suspect]
     Indication: VENTRICULAR DYSFUNCTION
     Route: 048
     Dates: start: 20060519, end: 20060809
  3. ALLOPURINOL [Suspect]
     Indication: GOUT
     Route: 065
  4. DIGOXIN [Concomitant]
     Indication: ATRIAL FIBRILLATION
     Route: 065
  5. ASPIRIN [Concomitant]
     Indication: ATRIAL FIBRILLATION
     Route: 065
  6. RAMIPRIL [Concomitant]
     Route: 065
     Dates: end: 20060506
  7. PERINDOPRIL [Concomitant]
     Route: 065

REACTIONS (6)
  - DRUG INEFFECTIVE [None]
  - DRUG INTERACTION [None]
  - LIMB DISCOMFORT [None]
  - OCULAR DISCOMFORT [None]
  - PAIN IN EXTREMITY [None]
  - SWELLING [None]
